FAERS Safety Report 6604814-9 (Version None)
Quarter: 2010Q1

REPORT INFORMATION
  Report Type: 
  Country: None (occurrence: None)
  Receive Date: 20100226
  Receipt Date: 20100218
  Transmission Date: 20100710
  Serious: Yes (Life-Threatening, Hospitalization, Other)
  Sender: FDA-Public Use
  Company Number: DE-ROCHE-686989

PATIENT
  Sex: Female
  Weight: 92 kg

DRUGS (4)
  1. HERCEPTIN [Suspect]
     Route: 042
     Dates: start: 20090101
  2. FEMARA [Concomitant]
     Route: 048
     Dates: start: 20090325
  3. ARIXTRA [Concomitant]
     Indication: THROMBOSIS IN DEVICE
     Route: 058
     Dates: start: 20090201
  4. CIPROFLOXACIN [Concomitant]
     Indication: INFLAMMATION
     Route: 048
     Dates: start: 20090730, end: 20090803

REACTIONS (4)
  - DERMATITIS [None]
  - ERYTHEMA MULTIFORME [None]
  - LEUKOCYTOSIS [None]
  - THROMBOSIS IN DEVICE [None]
